FAERS Safety Report 5295701-X (Version None)
Quarter: 2007Q1

REPORT INFORMATION
  Report Type: 
  Country: None (occurrence: None)
  Receive Date: 20070116
  Receipt Date: 20060711
  Transmission Date: 20070707
  Serious: Yes (Other)
  Sender: FDA-Public Use
  Company Number: HQWYE892513JUL06

PATIENT
  Sex: Female

DRUGS (1)
  1. PREMPRO [Suspect]
     Dosage: .625/2.5 MG, 84 MOS. (7 YEARS)
     Dates: start: 19950101, end: 20021101

REACTIONS (1)
  - BREAST CANCER [None]
